FAERS Safety Report 19182031 (Version 2)
Quarter: 2021Q2

REPORT INFORMATION
  Report Type: Spontaneous
  Country: MT (occurrence: MT)
  Receive Date: 20210426
  Receipt Date: 20210517
  Transmission Date: 20210717
  Serious: Yes (Hospitalization)
  Sender: FDA-Public Use
  Company Number: MT-PFIZER INC-2021420866

PATIENT
  Age: 36 Year
  Sex: Female
  Weight: 78 kg

DRUGS (2)
  1. PREGABALIN. [Concomitant]
     Active Substance: PREGABALIN
     Indication: RHEUMATIC DISORDER
     Dosage: 75 MG, DAILY
     Dates: start: 20200701
  2. COMIRNATY [Suspect]
     Active Substance: TOZINAMERAN
     Indication: COVID-19 IMMUNISATION
     Dosage: 1ST DOSE, SINGLE
     Dates: start: 20210312, end: 20210312

REACTIONS (27)
  - Anaphylactic reaction [Recovering/Resolving]
  - Palpitations [Recovering/Resolving]
  - Dysphonia [Recovering/Resolving]
  - Eye swelling [Recovering/Resolving]
  - Lip swelling [Recovering/Resolving]
  - Vision blurred [Recovering/Resolving]
  - Swelling face [Recovering/Resolving]
  - Swelling [Recovering/Resolving]
  - Respiratory distress [Recovering/Resolving]
  - Pruritus [Recovering/Resolving]
  - Hypersensitivity [Recovering/Resolving]
  - Syncope [Recovering/Resolving]
  - Chest discomfort [Recovering/Resolving]
  - Off label use [Unknown]
  - Angioedema [Recovering/Resolving]
  - Dyspnoea [Unknown]
  - Use of accessory respiratory muscles [Recovering/Resolving]
  - Pruritus [Recovering/Resolving]
  - Rash pruritic [Recovered/Resolved]
  - Rash [Recovering/Resolving]
  - Flushing [Recovering/Resolving]
  - Erythema [Recovering/Resolving]
  - Tachycardia [Recovering/Resolving]
  - Bronchospasm [Recovering/Resolving]
  - Loss of consciousness [Recovering/Resolving]
  - Swollen tongue [Recovering/Resolving]
  - Nausea [Recovering/Resolving]

NARRATIVE: CASE EVENT DATE: 20210312
